FAERS Safety Report 5392156-1 (Version None)
Quarter: 2007Q3

REPORT INFORMATION
  Report Type: 
  Country: None (occurrence: None)
  Receive Date: 20070720
  Receipt Date: 20070712
  Transmission Date: 20080115
  Serious: Yes (Hospitalization)
  Sender: FDA-Public Use
  Company Number: TR-BRISTOL-MYERS SQUIBB COMPANY-13849781

PATIENT
  Age: 52 Year
  Sex: Male

DRUGS (3)
  1. METFORMIN HCL [Suspect]
     Indication: DIABETES MELLITUS
     Route: 048
     Dates: start: 20070601, end: 20070701
  2. ACETYLSALICYLIC ACID SRT [Concomitant]
  3. VERAPAMIL [Concomitant]

REACTIONS (3)
  - HEPATOTOXICITY [None]
  - LACTIC ACIDOSIS [None]
  - SEPSIS [None]
